FAERS Safety Report 7065662-1 (Version None)
Quarter: 2010Q4

REPORT INFORMATION
  Report Type: 
  Country: None (occurrence: None)
  Receive Date: 20101022
  Receipt Date: 20101022
  Transmission Date: 20110411
  Serious: Yes (Disabling)
  Sender: FDA-Public Use
  Company Number: None

PATIENT
  Age: 60 Year
  Sex: Male
  Weight: 90.7194 kg

DRUGS (1)
  1. ACTOS [Suspect]
     Indication: DIABETES MELLITUS
     Dosage: 45 MG 2X DAY ORAL
     Route: 048
     Dates: start: 20040701

REACTIONS (3)
  - BLADDER CANCER [None]
  - CYSTOSTOMY [None]
  - TREATMENT FAILURE [None]
